FAERS Safety Report 9632880 (Version 3)
Quarter: 2013Q4

REPORT INFORMATION
  Report Type: Report from Study
  Country: US (occurrence: US)
  Receive Date: 20131018
  Receipt Date: 20131115
  Transmission Date: 20140711
  Serious: Yes (Hospitalization, Other)
  Sender: FDA-Public Use
  Company Number: US-ABBVIE-13P-163-1082179-00

PATIENT
  Age: 20 Year
  Sex: Male

DRUGS (3)
  1. HUMIRA [Suspect]
     Indication: CROHN^S DISEASE
     Dates: start: 2010
  2. HUMIRA [Suspect]
     Dates: start: 2010
  3. HUMIRA [Suspect]
     Dates: start: 20130411, end: 20131026

REACTIONS (20)
  - Malaise [Unknown]
  - Frequent bowel movements [Recovered/Resolved]
  - Abdominal pain [Recovered/Resolved]
  - Haematochezia [Recovered/Resolved]
  - Gastrointestinal inflammation [Not Recovered/Not Resolved]
  - Crohn^s disease [Recovered/Resolved]
  - Pain [Not Recovered/Not Resolved]
  - Perirectal abscess [Recovered/Resolved]
  - Gastrointestinal inflammation [Recovered/Resolved]
  - Gastrooesophageal reflux disease [Unknown]
  - Malaise [Recovered/Resolved]
  - Crohn^s disease [Unknown]
  - Diarrhoea [Unknown]
  - Abdominal pain [Unknown]
  - Haematochezia [Unknown]
  - Bowel movement irregularity [Unknown]
  - Abnormal faeces [Unknown]
  - Gastrointestinal disorder [Unknown]
  - Colectomy total [Unknown]
  - Drug ineffective [Unknown]
